FAERS Safety Report 22520236 (Version 1)
Quarter: 2023Q2

REPORT INFORMATION
  Report Type: Report from Study
  Country: IL (occurrence: None)
  Receive Date: 20230605
  Receipt Date: 20230605
  Transmission Date: 20230721
  Serious: Yes (Hospitalization)
  Sender: FDA-Public Use
  Company Number: 2023A125228

PATIENT
  Age: 44 Year
  Sex: Female

DRUGS (1)
  1. FASENRA [Suspect]
     Active Substance: BENRALIZUMAB
     Indication: Asthma
     Route: 058
     Dates: start: 20200217

REACTIONS (8)
  - Polyp [Recovering/Resolving]
  - Dyspnoea [Recovered/Resolved]
  - Bronchitis [Unknown]
  - Asthenia [Unknown]
  - Hyperhidrosis [Unknown]
  - Endometriosis [Unknown]
  - Headache [Unknown]
  - Pharyngitis [Unknown]
